FAERS Safety Report 17005023 (Version 2)
Quarter: 2020Q1

REPORT INFORMATION
  Report Type: Spontaneous
  Country: US (occurrence: US)
  Receive Date: 20191107
  Receipt Date: 20200206
  Transmission Date: 20200409
  Serious: No
  Sender: FDA-Public Use
  Company Number: US-JNJFOC-20191046247

PATIENT
  Sex: Male

DRUGS (1)
  1. ZYTIGA [Suspect]
     Active Substance: ABIRATERONE ACETATE
     Indication: PRODUCT USED FOR UNKNOWN INDICATION
     Dosage: TAKE 4 TABS BY MOUTH ONCE DAILY
     Route: 048
     Dates: start: 20170612

REACTIONS (3)
  - Body height decreased [Unknown]
  - Weight decreased [Unknown]
  - Bone loss [Unknown]
